FAERS Safety Report 7092606-9 (Version None)
Quarter: 2010Q4

REPORT INFORMATION
  Report Type: 
  Country: None (occurrence: None)
  Receive Date: 20101110
  Receipt Date: 20101102
  Transmission Date: 20110411
  Serious: Yes (Other)
  Sender: FDA-Public Use
  Company Number: US-US-EMD SERONO, INC.-7001861

PATIENT
  Sex: Female
  Weight: 67 kg

DRUGS (8)
  1. REBIF [Suspect]
     Indication: MULTIPLE SCLEROSIS
     Route: 058
     Dates: start: 20091012, end: 20100328
  2. REBIF [Suspect]
     Route: 058
     Dates: start: 20100411
  3. ESTRADIOL [Concomitant]
     Indication: HORMONE REPLACEMENT THERAPY
     Dates: start: 20050101
  4. LISINOPRIL [Concomitant]
     Indication: HYPERTENSION
  5. NEURONTIN [Concomitant]
     Indication: CERVICOBRACHIAL SYNDROME
  6. NEURONTIN [Concomitant]
     Indication: SPINAL OSTEOARTHRITIS
  7. TRAZODONE [Concomitant]
     Indication: INSOMNIA
  8. CYCLOBENZAPRINE [Concomitant]
     Indication: MUSCLE RELAXANT THERAPY

REACTIONS (9)
  - BALANCE DISORDER [None]
  - BONE CYST [None]
  - FATIGUE [None]
  - GAIT DISTURBANCE [None]
  - GOITRE [None]
  - HYPOTHYROIDISM [None]
  - MEMORY IMPAIRMENT [None]
  - STRESS [None]
  - THYROID CANCER [None]
